FAERS Safety Report 9351705 (Version 1)
Quarter: 2013Q2

REPORT INFORMATION
  Report Type: Spontaneous
  Country: US (occurrence: US)
  Receive Date: 20130617
  Receipt Date: 20130617
  Transmission Date: 20140414
  Serious: Yes (Hospitalization, Other)
  Sender: FDA-Public Use
  Company Number: US-ACTAVIS-2013-10264

PATIENT
  Age: 45 Year
  Sex: Female

DRUGS (4)
  1. OXALIPLATIN (ATLLC) [Suspect]
     Indication: COLORECTAL CANCER STAGE III
     Dosage: UNK
     Route: 065
  2. FLUOROURACIL [Concomitant]
     Indication: COLORECTAL CANCER STAGE III
     Dosage: UNK
     Route: 065
  3. LEUCOVORIN                         /00566702/ [Concomitant]
     Indication: COLORECTAL CANCER STAGE III
     Dosage: UNK
     Route: 065
  4. BEVACIZUMAB [Concomitant]
     Indication: COLORECTAL CANCER STAGE III
     Dosage: UNK
     Route: 065

REACTIONS (3)
  - Portal hypertension [Recovered/Resolved]
  - Portal hypertensive gastropathy [Recovered/Resolved]
  - Oesophageal varices haemorrhage [Recovered/Resolved]
